FAERS Safety Report 9319476 (Version 27)
Quarter: 2017Q2

REPORT INFORMATION
  Report Type: Spontaneous
  Country: US (occurrence: US)
  Receive Date: 20130530
  Receipt Date: 20170614
  Transmission Date: 20170830
  Serious: Yes (Hospitalization, Other)
  Sender: FDA-Public Use
  Company Number: US-GLAXOSMITHKLINE-A0989064A

PATIENT
  Age: 52 Year
  Sex: Female
  Weight: 99.5 kg

DRUGS (57)
  1. FLOLAN [Suspect]
     Active Substance: EPOPROSTENOL SODIUM
     Indication: PULMONARY HYPERTENSION
     Dosage: UNK
     Dates: start: 20090603
  2. FLOLAN [Suspect]
     Active Substance: EPOPROSTENOL SODIUM
     Dosage: 20 DF, UNK
     Dates: start: 20090611
  3. ADCIRCA [Concomitant]
     Active Substance: TADALAFIL
  4. ONDANSETRON [Concomitant]
     Active Substance: ONDANSETRON
  5. MANGANESE GLUCONATE. [Concomitant]
     Active Substance: MANGANESE GLUCONATE
  6. LOSARTAN POTASSIUM. [Concomitant]
     Active Substance: LOSARTAN POTASSIUM
  7. PRILOSEC [Concomitant]
     Active Substance: OMEPRAZOLE MAGNESIUM
  8. FLOLAN [Suspect]
     Active Substance: EPOPROSTENOL SODIUM
     Dosage: UNK
     Dates: start: 20090611
  9. FLOLAN [Suspect]
     Active Substance: EPOPROSTENOL SODIUM
     Dosage: 20 DF, CO
     Route: 042
  10. FLOLAN [Suspect]
     Active Substance: EPOPROSTENOL SODIUM
     Dosage: 20 DF, CO
     Dates: start: 20090610
  11. FLOLAN [Suspect]
     Active Substance: EPOPROSTENOL SODIUM
     Dosage: UNK
     Dates: start: 20161014
  12. GLUCOSAMINE COMPLEX [Concomitant]
     Active Substance: GLUCOSAMINE\GLUCOSAMINE SULFATE
  13. LYRICA [Concomitant]
     Active Substance: PREGABALIN
  14. FINACEA [Concomitant]
     Active Substance: AZELAIC ACID
  15. WARFARIN SODIUM. [Concomitant]
     Active Substance: WARFARIN SODIUM
  16. FLOLAN [Suspect]
     Active Substance: EPOPROSTENOL SODIUM
     Dosage: 22 DF, CO
     Route: 042
  17. FLOLAN [Suspect]
     Active Substance: EPOPROSTENOL SODIUM
     Dosage: 20 DF, CO
     Dates: start: 20090610
  18. FLOLAN [Suspect]
     Active Substance: EPOPROSTENOL SODIUM
     Dosage: 20 DF, CO
  19. SYNTHROID [Concomitant]
     Active Substance: LEVOTHYROXINE SODIUM
  20. RED YEAST RICE [Concomitant]
     Active Substance: DIETARY SUPPLEMENT
  21. CLONAZEPAM. [Concomitant]
     Active Substance: CLONAZEPAM
  22. FLOLAN [Suspect]
     Active Substance: EPOPROSTENOL SODIUM
     Indication: PULMONARY ARTERIAL HYPERTENSION
     Dosage: 16 DF, CO
     Route: 042
     Dates: start: 20090603
  23. FLOLAN [Suspect]
     Active Substance: EPOPROSTENOL SODIUM
     Dosage: UNK
     Dates: start: 20090603
  24. FLOLAN [Suspect]
     Active Substance: EPOPROSTENOL SODIUM
     Dosage: 20 DF, CO
  25. FLOLAN [Suspect]
     Active Substance: EPOPROSTENOL SODIUM
     Dosage: UNK, CO
     Dates: start: 20090610
  26. FLOLAN [Suspect]
     Active Substance: EPOPROSTENOL SODIUM
     Dosage: UNK
  27. FLOLAN [Suspect]
     Active Substance: EPOPROSTENOL SODIUM
     Dosage: 20 DF, CO
     Dates: start: 20090610
  28. FLOLAN [Suspect]
     Active Substance: EPOPROSTENOL SODIUM
     Indication: PULMONARY ARTERIAL HYPERTENSION
  29. FLOLAN [Suspect]
     Active Substance: EPOPROSTENOL SODIUM
     Indication: PULMONARY ARTERIAL HYPERTENSION
     Dosage: UNK
  30. FLOLAN [Suspect]
     Active Substance: EPOPROSTENOL SODIUM
     Dosage: UNK
     Dates: start: 20161014
  31. COENZYME Q10 [Concomitant]
     Active Substance: UBIDECARENONE
  32. DOXYCYCLINE. [Concomitant]
     Active Substance: DOXYCYCLINE
  33. GUAIFENESIN. [Concomitant]
     Active Substance: GUAIFENESIN
  34. FERROUS SULFATE. [Concomitant]
     Active Substance: FERROUS SULFATE
  35. FLOLAN [Suspect]
     Active Substance: EPOPROSTENOL SODIUM
     Dosage: UNK
     Dates: start: 20090603
  36. FEXOFENADINE HYDROCHLORIDE. [Concomitant]
     Active Substance: FEXOFENADINE HYDROCHLORIDE
  37. CHLORPHENIRAMINE + HYDROCODONE [Concomitant]
     Active Substance: CHLORPHENIRAMINE HYDROCHLORIDE\HYDROCODONE
  38. COUMADIN [Concomitant]
     Active Substance: WARFARIN SODIUM
  39. FLOLAN [Suspect]
     Active Substance: EPOPROSTENOL SODIUM
     Dosage: UNK
     Dates: start: 20090603
  40. FLOLAN [Suspect]
     Active Substance: EPOPROSTENOL SODIUM
     Dosage: UNK
     Dates: start: 20090603
  41. FLOLAN [Suspect]
     Active Substance: EPOPROSTENOL SODIUM
     Dosage: UNK
  42. FLOLAN [Suspect]
     Active Substance: EPOPROSTENOL SODIUM
     Dosage: 20 DF, CO
     Dates: start: 20090610
  43. RANITIDINE. [Concomitant]
     Active Substance: RANITIDINE
  44. EFFEXOR XR [Concomitant]
     Active Substance: VENLAFAXINE HYDROCHLORIDE
  45. GLUCAGON. [Concomitant]
     Active Substance: GLUCAGON
  46. FLOLAN [Suspect]
     Active Substance: EPOPROSTENOL SODIUM
     Dosage: UNK
     Dates: start: 20090603
  47. FLOLAN [Suspect]
     Active Substance: EPOPROSTENOL SODIUM
     Dosage: 20 DF, CO
     Route: 042
  48. FLOLAN [Suspect]
     Active Substance: EPOPROSTENOL SODIUM
     Dosage: 20 DF, CO
     Route: 042
  49. FLOLAN [Suspect]
     Active Substance: EPOPROSTENOL SODIUM
     Dosage: 20 NG/KG/MIN
  50. NASONEX [Concomitant]
     Active Substance: MOMETASONE FUROATE
  51. TORSEMIDE. [Concomitant]
     Active Substance: TORSEMIDE
  52. TRAMADOL. [Concomitant]
     Active Substance: TRAMADOL
  53. FLOLAN [Suspect]
     Active Substance: EPOPROSTENOL SODIUM
     Dosage: UNK
     Dates: start: 20090603
  54. FLOLAN [Suspect]
     Active Substance: EPOPROSTENOL SODIUM
     Dosage: UNK
     Dates: start: 20090603
  55. FLOLAN [Suspect]
     Active Substance: EPOPROSTENOL SODIUM
     Dosage: 20 DF, CO
     Route: 042
  56. MAGNESIUM [Concomitant]
     Active Substance: MAGNESIUM
  57. METAXALONE. [Concomitant]
     Active Substance: METAXALONE

REACTIONS (38)
  - Infusion site cellulitis [Recovered/Resolved]
  - Diarrhoea [Unknown]
  - Pain in extremity [Not Recovered/Not Resolved]
  - Chest pain [Unknown]
  - Feeling hot [Not Recovered/Not Resolved]
  - Influenza [Unknown]
  - Device related infection [Unknown]
  - Upper respiratory tract infection [Unknown]
  - Malaise [Not Recovered/Not Resolved]
  - Medical device change [Unknown]
  - Headache [Not Recovered/Not Resolved]
  - Allergic sinusitis [Recovered/Resolved]
  - Fatigue [Not Recovered/Not Resolved]
  - Muscle strain [Unknown]
  - Cough [Unknown]
  - Rash macular [Not Recovered/Not Resolved]
  - Catheter site infection [Unknown]
  - Cellulitis [Unknown]
  - Ill-defined disorder [Unknown]
  - Catheter site discharge [Recovering/Resolving]
  - Pain in jaw [Unknown]
  - Complication associated with device [Unknown]
  - Flushing [Not Recovered/Not Resolved]
  - Vaginal haemorrhage [Unknown]
  - Ovarian cyst [Unknown]
  - Back disorder [Recovering/Resolving]
  - Muscle spasms [Recovered/Resolved]
  - Rash [Recovering/Resolving]
  - Jugular vein thrombosis [Unknown]
  - Suture insertion [Unknown]
  - Skin irritation [Unknown]
  - Central venous catheterisation [Unknown]
  - Catheter site erythema [Recovering/Resolving]
  - Weight decreased [Unknown]
  - Sinusitis [Unknown]
  - Vertigo [Unknown]
  - Ear infection [Unknown]
  - Tooth disorder [Unknown]

NARRATIVE: CASE EVENT DATE: 20120612
